FAERS Safety Report 13871746 (Version 1)
Quarter: 2017Q3

REPORT INFORMATION
  Report Type: Report from Study
  Country: US (occurrence: US)
  Receive Date: 20170816
  Receipt Date: 20170816
  Transmission Date: 20171127
  Serious: Yes (Other)
  Sender: FDA-Public Use
  Company Number: US-ELI_LILLY_AND_COMPANY-US201708004873

PATIENT

DRUGS (3)
  1. GEMCITABINE HYDROCHLORIDE. [Suspect]
     Active Substance: GEMCITABINE HYDROCHLORIDE
     Indication: NEOPLASM MALIGNANT
     Dosage: 1000 MG/M2, CYCLICAL
     Route: 042
  2. BEVACIZUMAB. [Concomitant]
     Active Substance: BEVACIZUMAB
     Indication: NEOPLASM MALIGNANT
     Dosage: 10 MG/M2, CYCLICAL
     Route: 042
  3. PACLITAXEL ALBUMIN [Concomitant]
     Active Substance: PACLITAXEL
     Indication: NEOPLASM MALIGNANT
     Dosage: 50 MG/M2, CYCLICAL
     Route: 042

REACTIONS (2)
  - Dehydration [Unknown]
  - Dysphagia [Unknown]
